APPROVED DRUG PRODUCT: CALAN
Active Ingredient: VERAPAMIL HYDROCHLORIDE
Strength: 40MG **Federal Register determination that product was not discontinued or withdrawn for safety or effectiveness reasons**
Dosage Form/Route: TABLET;ORAL
Application: N018817 | Product #003
Applicant: PFIZER INC
Approved: Feb 23, 1988 | RLD: No | RS: No | Type: DISCN